FAERS Safety Report 10059438 (Version 2)
Quarter: 2014Q4

REPORT INFORMATION
  Report Type: Spontaneous
  Country: US (occurrence: None)
  Receive Date: 20140402
  Receipt Date: 20141024
  Transmission Date: 20150528
  Serious: Yes (Death)
  Sender: FDA-Public Use
  Company Number: 1713747-2014-99936

PATIENT
  Age: 57 Year
  Sex: Male
  Weight: 115.67 kg

DRUGS (17)
  1. FRESENIUS COMBISET [Concomitant]
  2. FISH OIL [Concomitant]
     Active Substance: FISH OIL
  3. MULTIVITAMIN [Concomitant]
     Active Substance: VITAMINS
  4. COUMADIN [Concomitant]
     Active Substance: WARFARIN SODIUM
  5. TRICOR [Concomitant]
     Active Substance: FENOFIBRATE
  6. PHOSLO [Concomitant]
     Active Substance: CALCIUM ACETATE
  7. GRANUFLO [Concomitant]
     Active Substance: ACETIC ACID\SODIUM ACETATE
  8. NOVOLOG [Concomitant]
     Active Substance: INSULIN ASPART
  9. DIALYZER [Concomitant]
  10. PRAVACHOL [Concomitant]
     Active Substance: PRAVASTATIN SODIUM
  11. BAYER 81MG ENTERIC ASPIRIN [Concomitant]
     Active Substance: ASPIRIN
  12. NITROGLYCERIN. [Concomitant]
     Active Substance: NITROGLYCERIN
  13. LANTUS [Concomitant]
     Active Substance: INSULIN GLARGINE
  14. FRESENIUS 2008K HEMODIALYSIS SYSTEM [Concomitant]
  15. LORTAB [Concomitant]
     Active Substance: ACETAMINOPHEN\HYDROCODONE BITARTRATE
  16. 0.9 NORMAL SALINE [Suspect]
     Active Substance: SODIUM CHLORIDE
     Indication: CHRONIC KIDNEY DISEASE
     Dosage: HEMODIALYSIS
     Dates: start: 20100218
  17. NATURALYTE [Concomitant]
     Active Substance: ACETIC ACID\SODIUM ACETATE

REACTIONS (1)
  - Cardio-respiratory arrest [None]

NARRATIVE: CASE EVENT DATE: 20100218
